FAERS Safety Report 6801853-X (Version None)
Quarter: 2010Q2

REPORT INFORMATION
  Report Type: 
  Country: None (occurrence: None)
  Receive Date: 20100629
  Receipt Date: 20100621
  Transmission Date: 20101027
  Serious: Yes (Death)
  Sender: FDA-Public Use
  Company Number: BR-PFIZER INC-2010078144

PATIENT
  Age: 67 Year
  Sex: Male

DRUGS (2)
  1. VIAGRA [Suspect]
     Dosage: UNK
     Route: 048
  2. LIPITOR [Concomitant]
     Dosage: UNK
     Dates: start: 20071101

REACTIONS (2)
  - CARDIAC DISORDER [None]
  - RENAL DISORDER [None]
